FAERS Safety Report 5052055-1 (Version None)
Quarter: 2006Q3

REPORT INFORMATION
  Report Type: 
  Country: None (occurrence: None)
  Receive Date: 20060711
  Receipt Date: 20060628
  Transmission Date: 20061208
  Serious: Yes (Other)
  Sender: FDA-Public Use
  Company Number: BR-2006-010449

PATIENT
  Age: 61 Year
  Sex: Female

DRUGS (7)
  1. LEUKINE [Suspect]
     Indication: CROHN'S DISEASE
     Dosage: 6 UG/KG, 1X/DAY; SUBCUTANEOUS
     Route: 058
     Dates: start: 20060417, end: 20060421
  2. OMEPRAZOLE [Concomitant]
  3. CALCIUM CARBONATE [Concomitant]
  4. GLUCOSAMINE [Concomitant]
  5. VITAMIN D3 [Concomitant]
  6. AMITRIPTYLINE HCL [Concomitant]
  7. ACETAMINOPHEN [Concomitant]

REACTIONS (1)
  - CHEST PAIN [None]
